FAERS Safety Report 24558811 (Version 1)
Quarter: 2024Q4

REPORT INFORMATION
  Report Type: Spontaneous
  Country: BG (occurrence: BG)
  Receive Date: 20241029
  Receipt Date: 20241029
  Transmission Date: 20250115
  Serious: Yes (Other)
  Sender: JAZZ
  Company Number: BG-JAZZ PHARMACEUTICALS-2024-BG-019326

PATIENT

DRUGS (3)
  1. CANNABIDIOL [Suspect]
     Active Substance: CANNABIDIOL
     Indication: Lennox-Gastaut syndrome
     Dosage: 10 MILLIGRAM/KILOGRAM/DAY
     Route: 048
     Dates: start: 202409
  2. TOPIRAX [Concomitant]
     Indication: Lennox-Gastaut syndrome
     Dosage: UNK
  3. CLOBAZAM [Concomitant]
     Active Substance: CLOBAZAM
     Indication: Lennox-Gastaut syndrome
     Dosage: UNK

REACTIONS (1)
  - Generalised tonic-clonic seizure [Unknown]

NARRATIVE: CASE EVENT DATE: 20240901
